FAERS Safety Report 4534067-7 (Version None)
Quarter: 2004Q4

REPORT INFORMATION
  Report Type: 
  Country: None (occurrence: None)
  Receive Date: 20041214
  Receipt Date: 20040915
  Transmission Date: 20050328
  Serious: No
  Sender: FDA-Public Use
  Company Number: USA040876858

PATIENT
  Age: 56 Year
  Sex: Male

DRUGS (8)
  1. CIALIS [Suspect]
     Indication: ERECTILE DYSFUNCTION
     Dosage: 10 MG
  2. PRILOSEC [Concomitant]
  3. TRAZADONE (TRAZODONE) [Concomitant]
  4. ASPIRIN (ACETYLSALCYLIC ACID) [Concomitant]
  5. DARVOCET-N 100 [Concomitant]
  6. LORTEL [Concomitant]
  7. CLONAPIN (CLONAZEPAM) [Concomitant]
  8. HYDROCODONE [Concomitant]

REACTIONS (1)
  - DRUG INEFFECTIVE [None]
